FAERS Safety Report 21035479 (Version 1)
Quarter: 2022Q3

REPORT INFORMATION
  Report Type: Spontaneous
  Country: IT (occurrence: IT)
  Receive Date: 20220701
  Receipt Date: 20220701
  Transmission Date: 20221027
  Serious: Yes (Other)
  Sender: FDA-Public Use
  Company Number: IT-JNJFOC-20220626305

PATIENT
  Age: 22 Year
  Sex: Male
  Weight: 51 kg

DRUGS (1)
  1. ACETAMINOPHEN [Suspect]
     Active Substance: ACETAMINOPHEN
     Indication: Product used for unknown indication
     Dosage: 3 GRAM, TOTAL, TOTAL 3 GM OF PARACETAMOL
     Route: 065

REACTIONS (1)
  - Intentional self-injury [Unknown]
